FAERS Safety Report 19604281 (Version 11)
Quarter: 2022Q3

REPORT INFORMATION
  Report Type: Spontaneous
  Country: US (occurrence: US)
  Receive Date: 20210723
  Receipt Date: 20220913
  Transmission Date: 20221027
  Serious: Yes (Other)
  Sender: FDA-Public Use
  Company Number: US-PFIZER INC-2021664552

PATIENT
  Age: 72 Year
  Sex: Female
  Weight: 57.15 kg

DRUGS (3)
  1. IBRANCE [Suspect]
     Active Substance: PALBOCICLIB
     Indication: Breast cancer female
     Dosage: 125 MG
  2. IBRANCE [Suspect]
     Active Substance: PALBOCICLIB
     Dosage: 125 MG
     Dates: start: 20220131
  3. IBRANCE [Suspect]
     Active Substance: PALBOCICLIB
     Dosage: 125 MG(125MG AT DINNER TIME, THEN 7 DAYS OFF AND THEN ON FOR 3 WEEKS)

REACTIONS (34)
  - Lower limb fracture [Unknown]
  - Fall [Unknown]
  - Pneumonia [Unknown]
  - Second primary malignancy [Unknown]
  - Lung neoplasm malignant [Unknown]
  - Cataract [Unknown]
  - Thrombosis [Unknown]
  - Wrong technique in product usage process [Unknown]
  - Alopecia [Unknown]
  - Fatigue [Unknown]
  - Decreased appetite [Unknown]
  - Pain in extremity [Unknown]
  - Arthritis [Unknown]
  - Gait disturbance [Unknown]
  - Sinusitis [Unknown]
  - Increased upper airway secretion [Unknown]
  - Sputum increased [Unknown]
  - Illness [Unknown]
  - Immune system disorder [Unknown]
  - Malaise [Unknown]
  - Asthenia [Unknown]
  - Feeding disorder [Unknown]
  - Sciatica [Unknown]
  - Nervous system disorder [Unknown]
  - Taste disorder [Unknown]
  - Product dose omission issue [Unknown]
  - Weight decreased [Unknown]
  - Pain [Unknown]
  - Tooth disorder [Unknown]
  - Memory impairment [Unknown]
  - Gingival discomfort [Unknown]
  - Mouth haemorrhage [Unknown]
  - Mastication disorder [Unknown]
  - Oral pain [Unknown]

NARRATIVE: CASE EVENT DATE: 20200101
